FAERS Safety Report 10338667 (Version 1)
Quarter: 2014Q3

REPORT INFORMATION
  Report Type: Spontaneous
  Country: US (occurrence: None)
  Receive Date: 20140722
  Receipt Date: 20140722
  Transmission Date: 20150326
  Serious: Yes (Hospitalization)
  Sender: FDA-Public Use
  Company Number: None

PATIENT
  Age: 53 Year
  Sex: Male
  Weight: 56 kg

DRUGS (2)
  1. CARBOPLATIN. [Suspect]
     Active Substance: CARBOPLATIN
     Dates: start: 20140716
  2. TAXOTERE [Suspect]
     Active Substance: DOCETAXEL
     Dates: start: 20140716

REACTIONS (2)
  - Presyncope [None]
  - Hypovolaemia [None]

NARRATIVE: CASE EVENT DATE: 20140718
